FAERS Safety Report 4264484-4 (Version None)
Quarter: 2004Q1

REPORT INFORMATION
  Report Type: 
  Country: None (occurrence: None)
  Receive Date: 20040106
  Receipt Date: 20040106
  Transmission Date: 20041129
  Serious: Yes (Hospitalization)
  Sender: FDA-Public Use
  Company Number: None

PATIENT
  Age: 15 Year
  Sex: Female
  Weight: 46.5 kg

DRUGS (3)
  1. IFOSFAMIDE [Suspect]
     Indication: ACUTE LYMPHOCYTIC LEUKAEMIA
     Dosage: 2.8 GM/M2 3.975  GM D
  2. IFOSFAMIDE [Suspect]
     Indication: DISEASE RECURRENCE
     Dosage: 2.8 GM/M2 3.975  GM D
  3. MESNA [Suspect]

REACTIONS (2)
  - DIZZINESS [None]
  - TREMOR [None]
